APPROVED DRUG PRODUCT: POTASSIUM CHLORIDE 0.3% AND SODIUM CHLORIDE 0.9%
Active Ingredient: POTASSIUM CHLORIDE; SODIUM CHLORIDE
Strength: 300MG/100ML;900MG/100ML
Dosage Form/Route: INJECTABLE;INJECTION
Application: A212347 | Product #002 | TE Code: AP
Applicant: FRESENIUS KABI USA LLC
Approved: Sep 17, 2020 | RLD: No | RS: No | Type: RX